FAERS Safety Report 4659237-9 (Version None)
Quarter: 2005Q2

REPORT INFORMATION
  Report Type: 
  Country: None (occurrence: None)
  Receive Date: 20050510
  Receipt Date: 20050427
  Transmission Date: 20051028
  Serious: Yes (Other)
  Sender: FDA-Public Use
  Company Number: 2005053725

PATIENT
  Sex: Male

DRUGS (1)
  1. GLADEM (SERTRALINE) [Suspect]
     Indication: DEPRESSION
     Dosage: ORAL
     Route: 048

REACTIONS (4)
  - BENIGN NEOPLASM OF BLADDER [None]
  - BENIGN PROSTATIC HYPERPLASIA [None]
  - HYPOTHYROIDISM [None]
  - UROGENITAL DISORDER [None]
